FAERS Safety Report 23914004 (Version 2)
Quarter: 2024Q2

REPORT INFORMATION
  Report Type: Report from Study
  Country: DE (occurrence: DE)
  Receive Date: 20240529
  Receipt Date: 20240605
  Transmission Date: 20240716
  Serious: Yes (Hospitalization, Other)
  Sender: FDA-Public Use
  Company Number: DE-Desitin-2024-00140

PATIENT
  Age: 11 Year
  Sex: Female

DRUGS (6)
  1. LAMOTRIGINE [Suspect]
     Active Substance: LAMOTRIGINE
     Indication: Hereditary ataxia
     Dosage: UNK
     Route: 065
  2. LAMOTRIGINE [Suspect]
     Active Substance: LAMOTRIGINE
     Indication: Ataxia
  3. VALPROIC ACID [Suspect]
     Active Substance: VALPROIC ACID
     Indication: Hereditary ataxia
     Dosage: UNK
     Route: 065
  4. VALPROIC ACID [Suspect]
     Active Substance: VALPROIC ACID
     Indication: Ataxia
  5. ACETAZOLAMIDE [Concomitant]
     Active Substance: ACETAZOLAMIDE
     Indication: Ataxia
     Dosage: UNK
     Route: 065
  6. ACETAZOLAMIDE [Concomitant]
     Active Substance: ACETAZOLAMIDE
     Indication: Ataxia

REACTIONS (4)
  - Drug ineffective [Recovered/Resolved]
  - Therapeutic product ineffective for unapproved indication [Recovered/Resolved]
  - Ataxia [Recovered/Resolved]
  - Off label use [Unknown]
